FAERS Safety Report 17796649 (Version 13)
Quarter: 2021Q1

REPORT INFORMATION
  Report Type: Spontaneous
  Country: CA (occurrence: CA)
  Receive Date: 20200518
  Receipt Date: 20210308
  Transmission Date: 20210419
  Serious: Yes (Other)
  Sender: FDA-Public Use
  Company Number: CA-CELLTRION INC.-2020CA019873

PATIENT

DRUGS (9)
  1. INFLECTRA [Suspect]
     Active Substance: INFLIXIMAB-DYYB
     Dosage: 500 MG, 0, 2, 6 WEEKS, THEN EVERY 4 WEEKS
     Route: 042
     Dates: start: 20200613, end: 20200613
  2. INFLECTRA [Suspect]
     Active Substance: INFLIXIMAB-DYYB
     Dosage: 600 MG 0, 2, 6 WEEKS, THEN EVERY 4 WEEKS RE?INDUCTION
     Dates: start: 20201023
  3. ESCITALOPRAM [Concomitant]
     Active Substance: ESCITALOPRAM OXALATE
     Dosage: 10 MG
     Route: 048
  4. INFLECTRA [Suspect]
     Active Substance: INFLIXIMAB-DYYB
     Dosage: 500 MG, 0, 2, 6 WEEKS, THEN EVERY 4 WEEKS
     Route: 042
     Dates: start: 20200515
  5. INFLECTRA [Suspect]
     Active Substance: INFLIXIMAB-DYYB
     Dosage: 600 MG 0, 2, 6 WEEKS, THEN EVERY 4 WEEKS RE?INDUCTION
     Dates: start: 202012
  6. INFLECTRA [Suspect]
     Active Substance: INFLIXIMAB-DYYB
     Dosage: 600 MG 0, 2, 6 WEEKS, THEN EVERY 4 WEEKS RE?INDUCTION
     Dates: start: 20210225
  7. INFLECTRA [Suspect]
     Active Substance: INFLIXIMAB-DYYB
     Indication: CROHN^S DISEASE
     Dosage: 500 MG, 0, 2, 6 WEEKS, THEN EVERY 4 WEEKS
     Route: 042
     Dates: start: 20200304
  8. INFLECTRA [Suspect]
     Active Substance: INFLIXIMAB-DYYB
     Dosage: 500 MG, 0, 2, 6 WEEKS, THEN EVERY 4 WEEKS
     Route: 042
     Dates: start: 20200317
  9. ENTOCORT [Concomitant]
     Active Substance: BUDESONIDE
     Dosage: 3 MG, (3 MG/TAB) 3X/DAY
     Route: 065

REACTIONS (13)
  - Arthralgia [Unknown]
  - Enterocolonic fistula [Unknown]
  - Inappropriate schedule of product administration [Unknown]
  - Muscle spasms [Unknown]
  - Product use issue [Unknown]
  - Intentional product use issue [Unknown]
  - Intestinal fistula [Unknown]
  - Asthenia [Unknown]
  - Weight increased [Unknown]
  - Product dose omission issue [Unknown]
  - Off label use [Unknown]
  - Condition aggravated [Recovered/Resolved]
  - Malaise [Unknown]

NARRATIVE: CASE EVENT DATE: 2020
